FAERS Safety Report 5824454-9 (Version None)
Quarter: 2008Q3

REPORT INFORMATION
  Report Type: 
  Country: None (occurrence: None)
  Receive Date: 20080728
  Receipt Date: 20080718
  Transmission Date: 20090109
  Serious: Yes (Other)
  Sender: FDA-Public Use
  Company Number: B0529669A

PATIENT
  Age: 82 Year
  Sex: Female

DRUGS (2)
  1. SERETIDE [Suspect]
     Indication: ASTHMA
     Dosage: 2PUFF TWICE PER DAY
     Route: 055
     Dates: start: 19930101
  2. VENTOLIN [Suspect]
     Indication: ASTHMA
     Route: 055
     Dates: start: 19880101

REACTIONS (4)
  - BRONCHITIS [None]
  - INFLUENZA [None]
  - PLEURISY [None]
  - PULMONARY CONGESTION [None]
